FAERS Safety Report 7074167-3 (Version None)
Quarter: 2010Q4

REPORT INFORMATION
  Report Type: 
  Country: None (occurrence: None)
  Receive Date: 20101029
  Receipt Date: 20101020
  Transmission Date: 20110411
  Serious: Yes (Hospitalization)
  Sender: FDA-Public Use
  Company Number: JP-ROCHE-728658

PATIENT
  Sex: Male

DRUGS (3)
  1. BEVACIZUMAB [Suspect]
     Indication: COLON CANCER
     Dosage: NOTE: DOSAGE WAS UNCERTAIN. IT WAS ONE ADMINISTERING WEEKLY HOLIDAY MEDICINE FOR TWO WEEKS.
     Route: 041
     Dates: start: 20100507, end: 20100810
  2. CAPECITABINE [Suspect]
     Indication: COLON CANCER
     Dosage: IT WAS ONE ADMINISTERING WEEKLY HOLIDAY MEDICINE FOR TWO.
     Route: 048
     Dates: start: 20100507, end: 20100810
  3. OXALIPLATIN [Suspect]
     Indication: COLON CANCER
     Route: 041
     Dates: start: 20100507, end: 20100810

REACTIONS (3)
  - ANGIOPATHY [None]
  - ENTEROCOLITIS [None]
  - MALAISE [None]
